FAERS Safety Report 5373095-9 (Version None)
Quarter: 2007Q2

REPORT INFORMATION
  Report Type: 
  Country: None (occurrence: None)
  Receive Date: 20070626
  Receipt Date: 20070615
  Transmission Date: 20071010
  Serious: Yes (Other)
  Sender: FDA-Public Use
  Company Number: 2007BI006747

PATIENT
  Age: 35 Year
  Sex: Female

DRUGS (4)
  1. NATALIZUMAB [Suspect]
     Indication: MULTIPLE SCLEROSIS
     Dosage: 300 MG; QM; IV
     Route: 042
     Dates: start: 20070220, end: 20070327
  2. AMITRIPTYLINE HCL [Concomitant]
  3. PSEUDOEPHEDRINE HCL [Concomitant]
  4. TYLENOL [Concomitant]

REACTIONS (8)
  - ANXIETY [None]
  - BACK PAIN [None]
  - BRONCHITIS BACTERIAL [None]
  - BRONCHITIS VIRAL [None]
  - LUNG INFECTION [None]
  - NASOPHARYNGITIS [None]
  - NUCLEAR MAGNETIC RESONANCE IMAGING ABNORMAL [None]
  - PANIC ATTACK [None]
